FAERS Safety Report 18926331 (Version 1)
Quarter: 2021Q1

REPORT INFORMATION
  Report Type: Spontaneous
  Country: US (occurrence: US)
  Receive Date: 20210222
  Receipt Date: 20210222
  Transmission Date: 20210420
  Serious: No
  Sender: FDA-Public Use
  Company Number: US-CADILA HEALTHCARE LIMITED-US-ZYDUS-061280

PATIENT

DRUGS (4)
  1. LASIX [Concomitant]
     Active Substance: FUROSEMIDE
     Indication: CARDIAC FAILURE
     Dosage: 60 MILLIGRAM, BID
     Route: 048
  2. BOSENTAN 125 MG TABLETS [Suspect]
     Active Substance: BOSENTAN
     Indication: PULMONARY ARTERIAL HYPERTENSION
     Dosage: 125 MILLIGRAM, BID
     Route: 048
  3. ELIQUIS [Concomitant]
     Active Substance: APIXABAN
     Indication: ATRIAL FIBRILLATION
     Dosage: 2.5 MILLIGRAM, BID
     Route: 048
  4. DILTIAZEM. [Concomitant]
     Active Substance: DILTIAZEM
     Indication: ATRIAL FIBRILLATION
     Dosage: 30 MILLIGRAM, TID
     Route: 048

REACTIONS (2)
  - Hypertension [Unknown]
  - Fatigue [Unknown]
